FAERS Safety Report 17517785 (Version 4)
Quarter: 2020Q2

REPORT INFORMATION
  Report Type: Spontaneous
  Country: US (occurrence: US)
  Receive Date: 20200309
  Receipt Date: 20200422
  Transmission Date: 20200713
  Serious: Yes (Other)
  Sender: FDA-Public Use
  Company Number: NVSC2020US064242

PATIENT
  Age: 78 Year
  Sex: Female

DRUGS (7)
  1. BEOVU [Suspect]
     Active Substance: BROLUCIZUMAB-DBLL
     Dosage: UNK
     Route: 047
     Dates: start: 202002, end: 20200204
  2. BEOVU [Suspect]
     Active Substance: BROLUCIZUMAB-DBLL
     Dosage: 6 MG, QMO
     Route: 047
     Dates: start: 20200305
  3. DUREZOL [Concomitant]
     Active Substance: DIFLUPREDNATE
     Indication: VITRITIS
     Dosage: 0.5 %, BID
     Route: 061
     Dates: start: 20200305, end: 20200317
  4. PREDNISOLONE. [Concomitant]
     Active Substance: PREDNISOLONE
     Dosage: 20 MG, QD
     Route: 048
     Dates: start: 20200317
  5. PREDNISOLONE. [Concomitant]
     Active Substance: PREDNISOLONE
     Indication: VITRITIS
     Dosage: 20 MG, BID
     Route: 048
     Dates: start: 20200305, end: 20200317
  6. DUREZOL [Concomitant]
     Active Substance: DIFLUPREDNATE
     Dosage: 0.5 %, BID
     Route: 061
     Dates: start: 20200317
  7. BEOVU [Suspect]
     Active Substance: BROLUCIZUMAB-DBLL
     Indication: NEOVASCULAR AGE-RELATED MACULAR DEGENERATION
     Dosage: UNK
     Route: 047
     Dates: start: 20191231

REACTIONS (3)
  - Retinal vein occlusion [Recovered/Resolved]
  - Retinal vasculitis [Unknown]
  - Vitritis [Recovering/Resolving]

NARRATIVE: CASE EVENT DATE: 20200305
